FAERS Safety Report 7532758-7 (Version None)
Quarter: 2011Q2

REPORT INFORMATION
  Report Type: 
  Country: None (occurrence: None)
  Receive Date: 20110608
  Receipt Date: 20110523
  Transmission Date: 20111010
  Serious: Yes (Hospitalization, Congenital Anomaly)
  Sender: FDA-Public Use
  Company Number: A0930650A

PATIENT
  Sex: Female

DRUGS (2)
  1. PAROXETINE HCL [Suspect]
     Dosage: 20MG PER DAY
     Route: 064
  2. PAXIL [Suspect]
     Dosage: 20MG PER DAY
     Route: 064

REACTIONS (3)
  - ATRIAL SEPTAL DEFECT [None]
  - ANOMALOUS PULMONARY VENOUS CONNECTION [None]
  - DRUG EXPOSURE DURING PREGNANCY [None]
